FAERS Safety Report 4386226-4 (Version None)
Quarter: 2004Q2

REPORT INFORMATION
  Report Type: 
  Country: None (occurrence: None)
  Receive Date: 20040623
  Receipt Date: 20040610
  Transmission Date: 20050107
  Serious: Yes (Hospitalization)
  Sender: FDA-Public Use
  Company Number: 2004AP02617

PATIENT
  Age: 72 Year
  Sex: Male

DRUGS (4)
  1. CASODEX [Suspect]
     Indication: PROSTATE CANCER
     Dosage: 80 MG DAILY PO
     Route: 048
     Dates: start: 20040427, end: 20040506
  2. HARNAL [Concomitant]
  3. VOLTAREN [Concomitant]
  4. RADIATION THERAPY [Concomitant]

REACTIONS (5)
  - HAEMOPTYSIS [None]
  - INTERCOSTAL NEURALGIA [None]
  - PNEUMONIA [None]
  - PULMONARY ARTERY THROMBOSIS [None]
  - PULMONARY EMBOLISM [None]
